FAERS Safety Report 12532075 (Version 1)
Quarter: 2016Q3

REPORT INFORMATION
  Report Type: Spontaneous
  Country: US (occurrence: US)
  Receive Date: 20160706
  Receipt Date: 20160706
  Transmission Date: 20161109
  Serious: Yes (Other)
  Sender: FDA-Public Use
  Company Number: US-TAKEDA-2016TUS011379

PATIENT

DRUGS (2)
  1. ENTYVIO [Suspect]
     Active Substance: VEDOLIZUMAB
     Indication: PRODUCT USED FOR UNKNOWN INDICATION
     Dosage: UNK
     Route: 042
  2. PREDNISONE. [Concomitant]
     Active Substance: PREDNISONE
     Dosage: 20 MG, UNK
     Route: 065

REACTIONS (10)
  - Feeling abnormal [Unknown]
  - Muscle strain [Unknown]
  - Abdominal distension [Unknown]
  - Arthralgia [Unknown]
  - Loss of consciousness [Unknown]
  - Musculoskeletal pain [Unknown]
  - Fatigue [Recovering/Resolving]
  - Dyspepsia [Unknown]
  - Abdominal pain [Recovered/Resolved]
  - Headache [Unknown]
